FAERS Safety Report 13390635 (Version 1)
Quarter: 2017Q1

REPORT INFORMATION
  Report Type: Spontaneous
  Country: US (occurrence: US)
  Receive Date: 20170330
  Receipt Date: 20170330
  Transmission Date: 20170429
  Serious: Yes (Hospitalization, Disabling)
  Sender: FDA-Public Use
  Company Number: None

PATIENT
  Age: 49 Year
  Sex: Female

DRUGS (5)
  1. PROBIOTIC [Concomitant]
     Active Substance: PROBIOTICS NOS
  2. GABAPENTIN. [Suspect]
     Active Substance: GABAPENTIN
     Indication: DIABETIC NEUROPATHY
     Dosage: 4 TIMES A DAY ORAL
     Route: 048
     Dates: start: 20131101, end: 20170329
  3. METFORMIN [Concomitant]
     Active Substance: METFORMIN HYDROCHLORIDE
  4. TRIPHALA [Concomitant]
  5. GEMFIBROZIL. [Concomitant]
     Active Substance: GEMFIBROZIL

REACTIONS (8)
  - Ataxia [None]
  - Seizure [None]
  - Disturbance in attention [None]
  - Dyskinesia [None]
  - Vision blurred [None]
  - Memory impairment [None]
  - Aphasia [None]
  - Depressed mood [None]

NARRATIVE: CASE EVENT DATE: 20170301
